FAERS Safety Report 4336875-4 (Version None)
Quarter: 2004Q1

REPORT INFORMATION
  Report Type: 
  Country: None (occurrence: None)
  Receive Date: 20040329
  Receipt Date: 20040112
  Transmission Date: 20041129
  Serious: No
  Sender: FDA-Public Use
  Company Number: USA040156384

PATIENT
  Age: 53 Year
  Sex: Female
  Weight: 91 kg

DRUGS (3)
  1. STRATTERA [Suspect]
     Indication: ATTENTION DEFICIT/HYPERACTIVITY DISORDER
     Dosage: 10 MG/DAY
     Dates: start: 20031212
  2. STRATTERA [Suspect]
     Indication: WEIGHT CONTROL
     Dosage: 10 MG/DAY
     Dates: start: 20031212
  3. MEGACE [Concomitant]

REACTIONS (1)
  - MENORRHAGIA [None]
